FAERS Safety Report 6866923-9 (Version None)
Quarter: 2010Q3

REPORT INFORMATION
  Report Type: 
  Country: None (occurrence: None)
  Receive Date: 20100722
  Receipt Date: 20100713
  Transmission Date: 20110219
  Serious: Yes (Death, Hospitalization, Other)
  Sender: FDA-Public Use
  Company Number: ES-ROCHE-710708

PATIENT
  Sex: Male
  Weight: 38 kg

DRUGS (8)
  1. PEGINTERFERON ALFA-2A [Suspect]
     Indication: HEPATITIS C
     Route: 058
     Dates: start: 20050610, end: 20050913
  2. PEGINTERFERON ALFA-2A [Suspect]
     Route: 058
     Dates: start: 20050913, end: 20060601
  3. PEGINTERFERON ALFA-2A [Suspect]
     Route: 058
     Dates: start: 20080708, end: 20080801
  4. RIBAVIRIN [Suspect]
     Indication: HEPATITIS C
     Route: 048
     Dates: start: 20050610, end: 20060601
  5. RIBAVIRIN [Suspect]
     Route: 048
     Dates: start: 20080708, end: 20080801
  6. KALETRA [Concomitant]
     Dosage: DOSE: 400
     Route: 048
     Dates: start: 20061020, end: 20080617
  7. ZIAGEN [Concomitant]
     Dosage: DOSE: 600
     Route: 048
     Dates: start: 20061020, end: 20080617
  8. VIREAD [Concomitant]
     Dosage: DOSE: 300
     Route: 048
     Dates: start: 20061020, end: 20080617

REACTIONS (8)
  - ANAEMIA [None]
  - BRAIN OEDEMA [None]
  - HEPATIC ENCEPHALOPATHY [None]
  - HEPATIC FAILURE [None]
  - HEPATITIS C [None]
  - NEUTROPENIA [None]
  - RENAL FAILURE [None]
  - THROMBOCYTOPENIA [None]
